FAERS Safety Report 7220144-9 (Version None)
Quarter: 2011Q1

REPORT INFORMATION
  Report Type: 
  Country: None (occurrence: None)
  Receive Date: 20110111
  Receipt Date: 20110110
  Transmission Date: 20110831
  Serious: Yes (Other)
  Sender: FDA-Public Use
  Company Number: US-BRISTOL-MYERS SQUIBB COMPANY-15478258

PATIENT
  Age: 59 Year
  Sex: Female
  Weight: 82 kg

DRUGS (10)
  1. TIKOSYN [Suspect]
     Indication: ATRIAL FIBRILLATION
     Route: 048
     Dates: start: 20081001
  2. LISINOPRIL [Concomitant]
     Indication: HEART RATE ABNORMAL
  3. SOTALOL [Suspect]
     Dates: start: 20081001, end: 20081001
  4. FUROSEMIDE [Concomitant]
     Indication: FLUID RETENTION
  5. LORAZEPAM [Concomitant]
     Indication: ANXIETY
  6. LISINOPRIL [Concomitant]
     Indication: BLOOD PRESSURE ABNORMAL
  7. POTASSIUM [Concomitant]
     Indication: BLOOD POTASSIUM DECREASED
  8. WARFARIN SODIUM [Suspect]
     Indication: THROMBOSIS
     Dates: start: 20080901, end: 20080101
  9. COUMADIN [Suspect]
     Route: 048
     Dates: start: 20080101
  10. FUROSEMIDE [Concomitant]
     Indication: BLOOD PRESSURE ABNORMAL

REACTIONS (4)
  - DYSPNOEA [None]
  - PRURITUS [None]
  - RASH [None]
  - ATRIAL FIBRILLATION [None]
